FAERS Safety Report 13791630 (Version 2)
Quarter: 2017Q3

REPORT INFORMATION
  Report Type: Spontaneous
  Country: CN (occurrence: CN)
  Receive Date: 20170725
  Receipt Date: 20170727
  Transmission Date: 20171127
  Serious: Yes (Hospitalization, Other)
  Sender: FDA-Public Use
  Company Number: CN-ALLERGAN-1730788US

PATIENT
  Age: 61 Year
  Sex: Female

DRUGS (11)
  1. HALOPERIDOL. [Suspect]
     Active Substance: HALOPERIDOL
     Indication: MEIGE^S SYNDROME
     Route: 065
  2. CLONAZEPAM. [Suspect]
     Active Substance: CLONAZEPAM
     Indication: MEIGE^S SYNDROME
     Dosage: 0.5 MG, QD
     Route: 042
  3. ZYPREXA [Suspect]
     Active Substance: OLANZAPINE
     Indication: MEIGE^S SYNDROME
     Route: 065
  4. LORAZEPAM. [Suspect]
     Active Substance: LORAZEPAM
     Indication: PRODUCT USED FOR UNKNOWN INDICATION
     Route: 065
  5. CLONAZEPAM. [Suspect]
     Active Substance: CLONAZEPAM
     Dosage: 10 MG, QD
     Dates: start: 2014
  6. PAROXETINE. [Suspect]
     Active Substance: PAROXETINE
     Indication: MEIGE^S SYNDROME
     Dosage: 30 MG, QD
     Route: 065
  7. CLONAZEPAM. [Suspect]
     Active Substance: CLONAZEPAM
     Indication: ANXIETY
     Dosage: 0.5 MG, QD, AT NIGHT
     Route: 042
  8. ESCITALOPRAM OXALATE - BP [Suspect]
     Active Substance: ESCITALOPRAM OXALATE
     Indication: MEIGE^S SYNDROME
     Dosage: 10 MG, QD
     Route: 065
  9. NITRAZEPAM [Suspect]
     Active Substance: NITRAZEPAM
     Indication: PRODUCT USED FOR UNKNOWN INDICATION
     Route: 065
  10. MELITRACEN [Suspect]
     Active Substance: MELITRACEN
     Indication: PRODUCT USED FOR UNKNOWN INDICATION
     Route: 065
  11. FLUPENTIXOL-FORM-UNKNOWN [Suspect]
     Active Substance: FLUPENTIXOL
     Indication: PRODUCT USED FOR UNKNOWN INDICATION
     Dosage: UNKNOWN
     Route: 065

REACTIONS (4)
  - Condition aggravated [Recovered/Resolved]
  - Gastrointestinal disorder [Unknown]
  - Meige^s syndrome [Recovered/Resolved]
  - Product use in unapproved indication [Unknown]
